FAERS Safety Report 19793526 (Version 1)
Quarter: 2021Q3

REPORT INFORMATION
  Report Type: Spontaneous
  Country: US (occurrence: US)
  Receive Date: 20210907
  Receipt Date: 20210907
  Transmission Date: 20211014
  Serious: No
  Sender: FDA-Public Use
  Company Number: US-ASTRAZENECA-2021A695644

PATIENT
  Age: 505 Month
  Sex: Female
  Weight: 60.3 kg

DRUGS (3)
  1. BYDUREON BCISE [Suspect]
     Active Substance: EXENATIDE
     Indication: DIABETES MELLITUS
     Route: 058
     Dates: start: 202107
  2. BYDUREON BCISE [Suspect]
     Active Substance: EXENATIDE
     Indication: DIABETES MELLITUS
     Route: 058
     Dates: start: 20210822
  3. INSULIN [Concomitant]
     Active Substance: INSULIN NOS
     Dosage: 30 UNITS, ONCE A DAY
     Route: 065

REACTIONS (6)
  - Incorrect dose administered by device [Unknown]
  - Drug dose omission by device [Unknown]
  - Extra dose administered [Unknown]
  - Injection site pain [Unknown]
  - Injection site haemorrhage [Unknown]
  - Device leakage [Unknown]

NARRATIVE: CASE EVENT DATE: 202107
